FAERS Safety Report 26109149 (Version 2)
Quarter: 2025Q4

REPORT INFORMATION
  Report Type: Report from Study
  Country: US (occurrence: US)
  Receive Date: 20251201
  Receipt Date: 20251224
  Transmission Date: 20260118
  Serious: No
  Sender: PFIZER
  Company Number: US-PFIZER INC-202500210786

PATIENT
  Age: 13 Year
  Sex: Female

DRUGS (2)
  1. CIBINQO [Interacting]
     Active Substance: ABROCITINIB
     Indication: Dermatitis atopic
     Dosage: 100 MG, 1X/DAY
  2. FLUOXETINE [Interacting]
     Active Substance: FLUOXETINE HYDROCHLORIDE
     Dosage: UNK

REACTIONS (1)
  - Drug interaction [Unknown]
